FAERS Safety Report 5772232-1 (Version None)
Quarter: 2008Q2

REPORT INFORMATION
  Report Type: 
  Country: None (occurrence: None)
  Receive Date: 20080610
  Receipt Date: 20080529
  Transmission Date: 20081010
  Serious: Yes (Disabling)
  Sender: FDA-Public Use
  Company Number: 2008AP001309

PATIENT
  Age: 64 Year
  Sex: Female

DRUGS (11)
  1. MELOXICAM [Suspect]
     Indication: BACK PAIN
     Dosage: 7.5 MG; BID; PO
     Route: 048
     Dates: start: 20080515, end: 20080527
  2. LEVOTHYROXINE SODIUM [Concomitant]
  3. OMEPRAZOLE [Concomitant]
  4. RISEDRONATE SODIUM [Concomitant]
  5. FLUTICASONE PROPITONATE [Concomitant]
  6. ACETAMINOPHEN [Concomitant]
  7. TRAZODONE HCL [Concomitant]
  8. SIMVASTATIN [Concomitant]
  9. VITAMIN CAP [Concomitant]
  10. VITAMIN B COMPLEX CAP [Concomitant]
  11. CALCIUM [Concomitant]

REACTIONS (4)
  - ABASIA [None]
  - DIZZINESS [None]
  - DYSSTASIA [None]
  - PHARMACEUTICAL PRODUCT COMPLAINT [None]
